FAERS Safety Report 12326785 (Version 1)
Quarter: 2016Q2

REPORT INFORMATION
  Report Type: Spontaneous
  Country: US (occurrence: None)
  Receive Date: 20160502
  Receipt Date: 20160502
  Transmission Date: 20160815
  Serious: No
  Sender: FDA-Public Use
  Company Number: None

PATIENT
  Age: 32 Year
  Sex: Female
  Weight: 72.58 kg

DRUGS (3)
  1. IRON [Concomitant]
     Active Substance: IRON
  2. MIRENA [Suspect]
     Active Substance: LEVONORGESTREL
     Dates: start: 20130701, end: 20160426
  3. MULTI VITAMIN [Concomitant]
     Active Substance: VITAMINS

REACTIONS (7)
  - Acne [None]
  - Amenorrhoea [None]
  - Mood altered [None]
  - Weight increased [None]
  - Abdominal distension [None]
  - Libido decreased [None]
  - Vaginal haemorrhage [None]

NARRATIVE: CASE EVENT DATE: 20160426
